FAERS Safety Report 8529496-0 (Version None)
Quarter: 2012Q3

REPORT INFORMATION
  Report Type: 
  Country: None (occurrence: None)
  Receive Date: 20120723
  Receipt Date: 20120713
  Transmission Date: 20120928
  Serious: Yes (Other)
  Sender: FDA-Public Use
  Company Number: US-US-EMD SERONO, INC.-7147947

PATIENT
  Sex: Female
  Weight: 34 kg

DRUGS (3)
  1. SAIZEN [Suspect]
     Indication: GROWTH HORMONE DEFICIENCY
     Dates: start: 20110101, end: 20120101
  2. VYVANASE [Concomitant]
     Indication: PRODUCT USED FOR UNKNOWN INDICATION
  3. OXCARBAZEPINE [Concomitant]
     Indication: CONVULSION

REACTIONS (1)
  - PETIT MAL EPILEPSY [None]
